FAERS Safety Report 16759737 (Version 1)
Quarter: 2019Q3

REPORT INFORMATION
  Report Type: Spontaneous
  Country: JP (occurrence: JP)
  Receive Date: 20190830
  Receipt Date: 20190830
  Transmission Date: 20191005
  Serious: Yes (Hospitalization, Other)
  Sender: FDA-Public Use
  Company Number: JP-GLAXOSMITHKLINE-JP2019JPN151706

PATIENT
  Age: 35 Year
  Sex: Male

DRUGS (6)
  1. ABILIFY [Interacting]
     Active Substance: ARIPIPRAZOLE
     Dosage: 30 MG, UNK
     Route: 048
  2. LAMICTAL [Suspect]
     Active Substance: LAMOTRIGINE
     Dosage: UNK
     Route: 048
  3. BROMAZEPAM [Interacting]
     Active Substance: BROMAZEPAM
     Dosage: UNK
     Route: 048
  4. TRAZODONE HYDROCHLORIDE TABLETS [Interacting]
     Active Substance: TRAZODONE HYDROCHLORIDE
     Dosage: 2 DF, UNK
     Route: 048
  5. EFFEXOR [Interacting]
     Active Substance: VENLAFAXINE HYDROCHLORIDE
     Dosage: 13350 MG, UNK
     Route: 048
  6. TRIAZOLAM. [Interacting]
     Active Substance: TRIAZOLAM
     Dosage: UNK
     Route: 048

REACTIONS (8)
  - Depressed level of consciousness [Recovering/Resolving]
  - Hepatic enzyme increased [Recovered/Resolved]
  - Drug level increased [Unknown]
  - Drug interaction [Unknown]
  - Glossoptosis [Unknown]
  - Hypoglycaemia [Recovered/Resolved]
  - Blood creatine phosphokinase increased [Recovered/Resolved]
  - Overdose [Unknown]

NARRATIVE: CASE EVENT DATE: 2019
